FAERS Safety Report 5153336-3 (Version None)
Quarter: 2006Q4

REPORT INFORMATION
  Report Type: 
  Country: None (occurrence: None)
  Receive Date: 20061114
  Receipt Date: 20061106
  Transmission Date: 20070319
  Serious: Yes (Other)
  Sender: FDA-Public Use
  Company Number: 2006SP005929

PATIENT
  Sex: 0

DRUGS (1)
  1. TEMOZOLOMIDE (S-P) (TEMOZOLOMIDE) [Suspect]
     Indication: ANAPLASTIC ASTROCYTOMA
     Dosage: PO
     Route: 048

REACTIONS (1)
  - DEEP VEIN THROMBOSIS [None]
